FAERS Safety Report 9451217 (Version 1)
Quarter: 2013Q3

REPORT INFORMATION
  Report Type: Spontaneous
  Country: NL (occurrence: NL)
  Receive Date: 20130809
  Receipt Date: 20130809
  Transmission Date: 20140515
  Serious: Yes (Death)
  Sender: FDA-Public Use
  Company Number: NL-TEVA-422919ISR

PATIENT
  Age: 56 Year
  Sex: Male

DRUGS (4)
  1. PACLITAXEL [Suspect]
     Indication: CORONARY ARTERY STENOSIS
     Dosage: DRUG-ELUTING STENT
     Route: 050
  2. ASPIRIN [Concomitant]
     Route: 065
  3. CLOPIDOGREL [Concomitant]
     Route: 065
  4. HEPARIN [Concomitant]
     Route: 065

REACTIONS (2)
  - Cardiogenic shock [Fatal]
  - Thrombosis in device [Not Recovered/Not Resolved]
